FAERS Safety Report 22015109 (Version 3)
Quarter: 2023Q1

REPORT INFORMATION
  Report Type: Report from Study
  Country: TR (occurrence: None)
  Receive Date: 20230221
  Receipt Date: 20230301
  Transmission Date: 20230418
  Serious: Yes (Hospitalization)
  Sender: FDA-Public Use
  Company Number: TR-ROCHE-3287232

PATIENT
  Age: 32 Year
  Sex: Female
  Weight: 54 kg

DRUGS (19)
  1. ATEZOLIZUMAB [Suspect]
     Active Substance: ATEZOLIZUMAB
     Indication: Malignant neoplasm of unknown primary site
     Dosage: DATE OF LAST DOSE OF TREATMENT STUDY DRUG 1 PRIOR TO SAE ONSET 12/JAN/2023
     Route: 041
     Dates: start: 20220706
  2. CISPLATIN [Suspect]
     Active Substance: CISPLATIN
     Indication: Malignant neoplasm of unknown primary site
     Dosage: RECEIVED FIRST DOSE OF INDUCTION CISPLATIN: 21/APR/2022 EVERY THREE WEEKS?RECEIVED LAST DOSE OF INDU
     Route: 042
     Dates: start: 20220706
  3. GEMCITABINE [Suspect]
     Active Substance: GEMCITABINE
     Indication: Malignant neoplasm of unknown primary site
     Dosage: RECEIVED FIRST DOSE OF INDUCTION GEMCITABINE: 21/APR/2022 EVERY 3 WEEKS?DATE OF LAST DOSE OF INDUCTI
     Route: 042
     Dates: start: 20220706
  4. GERALGINE-K [Concomitant]
     Indication: Pain
     Dosage: 500
     Route: 048
     Dates: start: 20220421
  5. PHENIRAMINE [Concomitant]
     Active Substance: PHENIRAMINE
     Dosage: SUBSEQUENT DOSE ON 12/MAY/2022, 21/APR/2022,  20/MAY/2022, 09/JUN/20222,16/JUN/2022, 06/JUL/2022, 21
     Route: 042
     Dates: start: 20220428, end: 20220428
  6. KYTRIL [Concomitant]
     Active Substance: GRANISETRON HYDROCHLORIDE
     Dosage: SUBSEQUENT DOSE ON 09/JUN/2022
     Route: 048
     Dates: start: 20220428
  7. KYTRIL [Concomitant]
     Active Substance: GRANISETRON HYDROCHLORIDE
     Dosage: SUBSEQUENT DOSE ON 20/MAY/2022, 12/MAY/2022, 09/JUN/2022, 16/JUN/2022, 06/JUL/2022, 21/JUL/2022, 29/
     Route: 042
     Dates: start: 20220421
  8. DEKORT [Concomitant]
     Active Substance: DEXAMETHASONE
     Dosage: SUBSEQUENT DOSE ON 12/MAY/2022, 21/APR/2022, 09/JUN/2022
     Route: 042
     Dates: start: 20220428, end: 20220428
  9. DEKORT [Concomitant]
     Active Substance: DEXAMETHASONE
     Dosage: SUBSEQUENT DOSE ON 16/JUN/2022, 06/JUL/2022, 21/JUL/2022, 29/JUL/2022, 05/AUG/2022
     Route: 042
     Dates: start: 20220520, end: 20220520
  10. ZOMETA [Concomitant]
     Active Substance: ZOLEDRONIC ACID
     Dosage: SUBSEQUENT DOSE ON 12/MAY/2022, 09/JUN/2022,16/JUN/2022, 06/JUL/2022, 21/JUL/2022, 29/JUL/2022, 05/A
     Route: 042
     Dates: start: 20220428, end: 20220428
  11. METOCLOPRAMIDE [Concomitant]
     Active Substance: METOCLOPRAMIDE
     Route: 048
     Dates: start: 20220421
  12. METOCLOPRAMIDE [Concomitant]
     Active Substance: METOCLOPRAMIDE
     Route: 048
     Dates: start: 20220520, end: 20220520
  13. EMEND [Concomitant]
     Active Substance: APREPITANT
     Dosage: SUBSEQUENT DOSE - 13/MAY/2022- 14/MAY/2022, 10/JUN/2022- 11/JUN/2022, 07/JUL/2022- 08/JUL/2022, 30/J
     Route: 048
     Dates: start: 20220422, end: 20220423
  14. EMEND [Concomitant]
     Active Substance: APREPITANT
     Dosage: SUBSEQUENT DOSE ON 12/MAY/2022, 09/JUN/2022, 06/JUL/2022, 29/JUL/2022
     Route: 048
     Dates: start: 20220421, end: 20220421
  15. MANNITOL [Concomitant]
     Active Substance: MANNITOL
     Dosage: SUBSEQUENT DOSE ON 06/JUL/2022, 29/JUL/2022
     Route: 042
     Dates: start: 20220609, end: 20220609
  16. PAROL [Concomitant]
     Active Substance: ACETAMINOPHEN
     Route: 042
     Dates: start: 20230207
  17. KIOVIG [Concomitant]
     Active Substance: HUMAN IMMUNOGLOBULIN G
     Route: 042
     Dates: start: 20230207
  18. MONUROL [Concomitant]
     Active Substance: FOSFOMYCIN TROMETHAMINE
     Indication: Urinary tract infection
     Route: 048
     Dates: start: 20221028, end: 20221029
  19. PIPERACILLIN SODIUM\TAZOBACTAM SODIUM [Concomitant]
     Active Substance: PIPERACILLIN SODIUM\TAZOBACTAM SODIUM
     Dosage: 3X 4.5 GR
     Route: 042
     Dates: start: 20230214

REACTIONS (1)
  - Infection [Recovering/Resolving]

NARRATIVE: CASE EVENT DATE: 20230214
